FAERS Safety Report 5081530-9 (Version None)
Quarter: 2006Q3

REPORT INFORMATION
  Report Type: 
  Country: None (occurrence: None)
  Receive Date: 20060816
  Receipt Date: 20060816
  Transmission Date: 20061208
  Serious: Yes (Hospitalization)
  Sender: FDA-Public Use
  Company Number: None

PATIENT
  Age: 43 Year
  Sex: Male
  Weight: 126.3 kg

DRUGS (2)
  1. IL -2 CHIRON [Suspect]
     Indication: MALIGNANT MELANOMA
     Dosage: 720,000 IU IV
     Route: 042
     Dates: start: 20060731, end: 20060803
  2. MOTRIN [Concomitant]

REACTIONS (6)
  - DEHYDRATION [None]
  - DYSPNOEA EXERTIONAL [None]
  - FLUID OVERLOAD [None]
  - GENERALISED OEDEMA [None]
  - PERFORMANCE STATUS DECREASED [None]
  - RENAL FAILURE ACUTE [None]
